FAERS Safety Report 15675147 (Version 2)
Quarter: 2019Q4

REPORT INFORMATION
  Report Type: Other
  Country: RO (occurrence: RO)
  Receive Date: 20181130
  Receipt Date: 20191003
  Transmission Date: 20200122
  Serious: Yes (Life-Threatening, Hospitalization, Disabling, Other)
  Sender: FDA-Public Use
  Company Number: RO-MACLEODS PHARMACEUTICALS US LTD-MAC2018018229

PATIENT

DRUGS (5)
  1. KREON 10000 [Concomitant]
     Active Substance: PANCRELIPASE
     Indication: PRODUCT USED FOR UNKNOWN INDICATION
     Dosage: UNK
     Route: 065
  2. SILDENAFIL. [Suspect]
     Active Substance: SILDENAFIL
     Indication: PULMONARY HYPERTENSION
     Dosage: 60 MILLIGRAM, QD TABLET (20 MG 3X/DAY)
     Route: 048
     Dates: start: 20180320, end: 20180628
  3. MYSILDECARD [Suspect]
     Active Substance: SILDENAFIL
     Indication: PULMONARY HYPERTENSION
     Dosage: 20 MILLIGRAM TABLET FOR EVERY 3 DAYS
     Route: 048
     Dates: start: 20180108, end: 20180320
  4. VIGANTOL [Concomitant]
     Indication: PRODUCT USED FOR UNKNOWN INDICATION
     Dosage: 1000 INTERNATIONAL UNIT, QD
     Route: 065
  5. GRANPIDAM [Suspect]
     Active Substance: SILDENAFIL CITRATE
     Indication: PULMONARY HYPERTENSION
     Dosage: 20 MILLIGRAM, TID TABLET (60 MG QD)
     Route: 048
     Dates: start: 20180320, end: 20180628

REACTIONS (7)
  - Cardiac disorder [Recovering/Resolving]
  - Dyspnoea [Recovering/Resolving]
  - Electrocardiogram abnormal [Recovering/Resolving]
  - Echocardiogram abnormal [Recovering/Resolving]
  - N-terminal prohormone brain natriuretic peptide abnormal [Recovering/Resolving]
  - Fatigue [Recovering/Resolving]
  - Tricuspid valve incompetence [Recovering/Resolving]

NARRATIVE: CASE EVENT DATE: 20180626
